FAERS Safety Report 8938584 (Version 1)
Quarter: 2012Q4

REPORT INFORMATION
  Report Type: 
  Country: DE (occurrence: DE)
  Receive Date: 20121203
  Receipt Date: 20121203
  Transmission Date: 20130627
  Serious: Yes (Life-Threatening)
  Sender: FDA-Public Use
  Company Number: PHHO2012DE017227

PATIENT
  Age: 56 Year
  Sex: Female
  Weight: 83 kg

DRUGS (3)
  1. EVEROLIMUS [Suspect]
     Indication: BREAST CANCER METASTATIC
     Dosage: 10 mg, QD
     Route: 048
     Dates: start: 20120921, end: 20121113
  2. EXEMESTANE [Suspect]
     Indication: BREAST CANCER METASTATIC
     Dosage: 25 mg, QD
     Route: 048
     Dates: start: 20120921, end: 20121113
  3. DUROGESIC [Concomitant]
     Indication: BONE PAIN
     Dosage: UNK
     Dates: start: 20120523

REACTIONS (2)
  - Pulmonary congestion [Recovering/Resolving]
  - Orthopnoea [Recovering/Resolving]
